FAERS Safety Report 25406248 (Version 1)
Quarter: 2025Q2

REPORT INFORMATION
  Report Type: Spontaneous
  Country: ES (occurrence: ES)
  Receive Date: 20250606
  Receipt Date: 20250606
  Transmission Date: 20250716
  Serious: Yes (Life-Threatening, Hospitalization)
  Sender: BIOGEN
  Company Number: None

PATIENT
  Age: 36 Year
  Sex: Female
  Weight: 70 kg

DRUGS (1)
  1. TYSABRI [Suspect]
     Active Substance: NATALIZUMAB
     Indication: Relapsing-remitting multiple sclerosis
     Dosage: MONTHLY
     Route: 050
     Dates: start: 20190206, end: 20241220

REACTIONS (1)
  - Central nervous system vasculitis [Recovered/Resolved with Sequelae]

NARRATIVE: CASE EVENT DATE: 20241220
